FAERS Safety Report 5327036-0 (Version None)
Quarter: 2007Q2

REPORT INFORMATION
  Report Type: 
  Country: None (occurrence: None)
  Receive Date: 20070517
  Receipt Date: 20070507
  Transmission Date: 20071010
  Serious: Yes (Hospitalization, Other)
  Sender: FDA-Public Use
  Company Number: PHRM2007FR01362

PATIENT
  Age: 87 Year
  Sex: Female
  Weight: 52.8 kg

DRUGS (8)
  1. EXELON [Suspect]
     Indication: DEMENTIA
     Dosage: 6 MG, BID
     Route: 048
     Dates: start: 20050901, end: 20060807
  2. EXELON [Suspect]
     Dates: end: 20060914
  3. TAREG [Concomitant]
     Dosage: 80 MG, QD
     Route: 048
  4. VISKEN [Concomitant]
     Dosage: 2.5 MG, QD
     Route: 048
  5. LEVOTHYROXINE SODIUM [Concomitant]
     Dosage: 50 UG, QD
     Route: 048
  6. CETORNAN [Concomitant]
     Dosage: 10 MG, QD
     Route: 048
  7. ZANTAC [Concomitant]
     Dosage: 1 DF, QD
     Route: 048
  8. MOTILIUM [Concomitant]
     Indication: NAUSEA
     Dosage: UNK, PRN
     Route: 048

REACTIONS (16)
  - ALANINE AMINOTRANSFERASE INCREASED [None]
  - ANAEMIA [None]
  - ANOREXIA [None]
  - ASPARTATE AMINOTRANSFERASE INCREASED [None]
  - ASTHENIA [None]
  - BLOOD ALKALINE PHOSPHATASE INCREASED [None]
  - C-REACTIVE PROTEIN INCREASED [None]
  - CHOLESTASIS [None]
  - CYTOLYTIC HEPATITIS [None]
  - ESCHERICHIA URINARY TRACT INFECTION [None]
  - FALL [None]
  - GAMMA-GLUTAMYLTRANSFERASE INCREASED [None]
  - GASTRITIS [None]
  - GENERAL PHYSICAL HEALTH DETERIORATION [None]
  - RENAL CYST [None]
  - RENAL DISORDER [None]
